FAERS Safety Report 17222076 (Version 1)
Quarter: 2019Q4

REPORT INFORMATION
  Report Type: Spontaneous
  Country: US (occurrence: US)
  Receive Date: 20191209
  Receipt Date: 20191209
  Transmission Date: 20200122
  Serious: No
  Sender: FDA-Public Use
  Company Number: None

PATIENT
  Age: 56 Year
  Sex: Female

DRUGS (1)
  1. CAPECITABINE TAB 500MG [Suspect]
     Active Substance: CAPECITABINE
     Route: 048
     Dates: start: 20191108

REACTIONS (4)
  - Peripheral swelling [None]
  - Memory impairment [None]
  - Periorbital swelling [None]
  - Product dose omission [None]

NARRATIVE: CASE EVENT DATE: 20191209
